FAERS Safety Report 19351288 (Version 2)
Quarter: 2022Q1

REPORT INFORMATION
  Report Type: Spontaneous
  Country: US (occurrence: US)
  Receive Date: 20210531
  Receipt Date: 20220128
  Transmission Date: 20220423
  Serious: No
  Sender: FDA-Public Use
  Company Number: US-PFIZER INC-2021251676

PATIENT
  Age: 74 Year
  Sex: Female

DRUGS (1)
  1. CADUET [Suspect]
     Active Substance: AMLODIPINE BESYLATE\ATORVASTATIN CALCIUM
     Dosage: UNK

REACTIONS (8)
  - Blood cholesterol increased [Unknown]
  - Cardiac disorder [Unknown]
  - Hypertension [Unknown]
  - Memory impairment [Unknown]
  - Neuralgia [Unknown]
  - Back disorder [Unknown]
  - Cough [Unknown]
  - Eye disorder [Unknown]

NARRATIVE: CASE EVENT DATE: 20210601
